FAERS Safety Report 5295192-9 (Version None)
Quarter: 2007Q2

REPORT INFORMATION
  Report Type: 
  Country: None (occurrence: None)
  Receive Date: 20070412
  Receipt Date: 20070406
  Transmission Date: 20071010
  Serious: Yes (Hospitalization)
  Sender: FDA-Public Use
  Company Number: GB-ABBOTT-07P-167-0364336-00

PATIENT
  Sex: Female

DRUGS (2)
  1. VALPROATE SODIUM [Suspect]
     Indication: AFFECTIVE DISORDER
  2. VALPROATE SODIUM [Suspect]

REACTIONS (2)
  - HYPONATRAEMIA [None]
  - MENTAL DISORDER [None]
